FAERS Safety Report 7541955-6 (Version None)
Quarter: 2011Q2

REPORT INFORMATION
  Report Type: 
  Country: None (occurrence: None)
  Receive Date: 20110524
  Receipt Date: 20110311
  Transmission Date: 20111010
  Serious: No
  Sender: FDA-Public Use
  Company Number: 029218

PATIENT
  Sex: Male

DRUGS (3)
  1. CIPRO [Concomitant]
  2. CIMZIA [Suspect]
     Indication: CROHN'S DISEASE
     Dosage: (SUBCUTANEOUS)
     Route: 058
     Dates: start: 20101124
  3. FLAGYL [Concomitant]

REACTIONS (4)
  - ABSCESS DRAINAGE [None]
  - ABSCESS [None]
  - RASH [None]
  - FATIGUE [None]
